FAERS Safety Report 4573032-0 (Version None)
Quarter: 2005Q1

REPORT INFORMATION
  Report Type: 
  Country: None (occurrence: None)
  Receive Date: 20050204
  Receipt Date: 20041029
  Transmission Date: 20050727
  Serious: Yes (Death)
  Sender: FDA-Public Use
  Company Number: 9156

PATIENT
  Age: 58 Year
  Sex: Female

DRUGS (6)
  1. DOXORUBICIN [Suspect]
     Indication: ADENOCARCINOMA
     Dosage: IV
     Route: 042
     Dates: start: 20041001
  2. VINCRISTINE [Suspect]
     Indication: ADENOCARCINOMA
     Dosage: IV
     Route: 042
     Dates: start: 20041001
  3. CYCLOPHOSPHAMIDE [Suspect]
     Indication: ADENOCARCINOMA
     Dosage: 1230 MG ONCE IV
     Route: 042
     Dates: start: 20041001
  4. PIPERACILLIN SODIUM W/TAZOBACTAM SODIUM [Concomitant]
  5. GENTAMICIN [Concomitant]
  6. NEUPOGEN [Concomitant]

REACTIONS (3)
  - GENERAL PHYSICAL HEALTH DETERIORATION [None]
  - MULTI-ORGAN FAILURE [None]
  - NEUTROPENIC SEPSIS [None]
